FAERS Safety Report 6029786-X (Version None)
Quarter: 2008Q4

REPORT INFORMATION
  Report Type: 
  Country: None (occurrence: None)
  Receive Date: 20081222
  Receipt Date: 20081008
  Transmission Date: 20090506
  Serious: No
  Sender: FDA-Public Use
  Company Number: US-WYE-H06314408

PATIENT
  Age: 65 Year
  Sex: Female
  Weight: 65.83 kg

DRUGS (13)
  1. PRISTIQ [Suspect]
     Indication: DEPRESSION
     Dosage: 50 MG 1X PER 1 DAY, ORAL
     Route: 048
     Dates: start: 20080901
  2. BACLOFEN [Concomitant]
  3. LOTREL [Concomitant]
  4. ZAMAFLEX (TIZANIDINE HYDROCHLORIDE) [Concomitant]
  5. AVONEX [Concomitant]
  6. TOPROL-XL [Concomitant]
  7. NEURONTIN [Concomitant]
  8. ZOCOR [Concomitant]
  9. LASIX [Concomitant]
  10. DARVOCET-N (DEXTROPROPOXYPHENE/PARACETAMOL) [Concomitant]
  11. URECHOLINE [Concomitant]
  12. PREVACID [Concomitant]
  13. LEVOTHYROXINE SODIUM [Concomitant]

REACTIONS (1)
  - CRYING [None]
